FAERS Safety Report 17949328 (Version 2)
Quarter: 2020Q3

REPORT INFORMATION
  Report Type: Spontaneous
  Country: US (occurrence: US)
  Receive Date: 20200625
  Receipt Date: 20200714
  Transmission Date: 20201103
  Serious: Yes (Death, Other)
  Sender: FDA-Public Use
  Company Number: US-GILEAD-2020-0475657

PATIENT
  Age: 68 Year
  Sex: Male

DRUGS (21)
  1. SEROQUEL [Concomitant]
     Active Substance: QUETIAPINE FUMARATE
  2. APIXABAN [Concomitant]
     Active Substance: APIXABAN
  3. SELENIUM [Concomitant]
     Active Substance: SELENIUM
  4. SOLU?MEDROL [Concomitant]
     Active Substance: METHYLPREDNISOLONE SODIUM SUCCINATE
  5. PROPOFOL. [Concomitant]
     Active Substance: PROPOFOL
  6. DOCUSATE [Concomitant]
     Active Substance: DOCUSATE
  7. FAMOTIDINE. [Concomitant]
     Active Substance: FAMOTIDINE
  8. FENTANYL. [Concomitant]
     Active Substance: FENTANYL
  9. INSULIN [Concomitant]
     Active Substance: INSULIN NOS
  10. VANCOMYCIN [Concomitant]
     Active Substance: VANCOMYCIN
  11. MEROPENEM. [Concomitant]
     Active Substance: MEROPENEM
  12. HEPARIN [Concomitant]
     Active Substance: HEPARIN SODIUM
  13. MIDAZOLAM. [Concomitant]
     Active Substance: MIDAZOLAM
  14. ROCURONIUM [Concomitant]
     Active Substance: ROCURONIUM BROMIDE
  15. ASCORBIC ACID. [Concomitant]
     Active Substance: ASCORBIC ACID
  16. CHOLECALCIFEROL [Concomitant]
     Active Substance: CHOLECALCIFEROL
  17. NOREPINEPHRINE. [Concomitant]
     Active Substance: NOREPINEPHRINE
  18. REMDESIVIR. [Suspect]
     Active Substance: REMDESIVIR
     Indication: COVID-19
     Dosage: 200 MG, ONCE
     Route: 042
     Dates: start: 20200520, end: 20200520
  19. ZINC. [Concomitant]
     Active Substance: ZINC
  20. REMDESIVIR. [Suspect]
     Active Substance: REMDESIVIR
     Dosage: 100 MG, QD
     Route: 042
     Dates: start: 20200521, end: 20200529
  21. PLASMA [Concomitant]
     Active Substance: HUMAN PLASMA

REACTIONS (1)
  - Cardiac arrest [Fatal]

NARRATIVE: CASE EVENT DATE: 20200614
